FAERS Safety Report 23924150 (Version 1)
Quarter: 2024Q2

REPORT INFORMATION
  Report Type: Spontaneous
  Country: US (occurrence: US)
  Receive Date: 20240531
  Receipt Date: 20240531
  Transmission Date: 20240715
  Serious: Yes (Other)
  Sender: FDA-Public Use
  Company Number: US-PFIZER INC-PV202300059381

PATIENT
  Sex: Female
  Weight: 58.6 kg

DRUGS (14)
  1. TALIMOGENE LAHERPAREPVEC [Suspect]
     Active Substance: TALIMOGENE LAHERPAREPVEC
     Indication: Metastatic malignant melanoma
     Dosage: UNK
     Route: 065
  2. BRAFTOVI [Suspect]
     Active Substance: ENCORAFENIB
     Indication: Metastatic malignant melanoma
     Dosage: 225 MILLIGRAM, QD (TAKE 3 CAPSULES, 30 DAY SUPPLY), INDICATE NUMBER OF REFILLS: 11
     Route: 048
  3. ENCORAFENIB [Suspect]
     Active Substance: ENCORAFENIB
     Indication: Metastatic malignant melanoma
     Dosage: 75 MILLIGRAM, QD (3 CAP, 90 CAP, 5 REFILL(S), 2, 3 CAP ORAL DAILY)
     Route: 048
  4. ENCORAFENIB [Suspect]
     Active Substance: ENCORAFENIB
     Dosage: 450 UNK, QD
     Route: 065
     Dates: start: 20211203
  5. ENCORAFENIB [Suspect]
     Active Substance: ENCORAFENIB
     Dosage: 300 UNK, BID
     Route: 065
     Dates: start: 20211213
  6. MEKTOVI [Suspect]
     Active Substance: BINIMETINIB
     Indication: Metastatic malignant melanoma
     Dosage: 30 MILLIGRAM, BID (TAKE 2 TABS, 30 DAY SUPPLY) INDICATE NUMBER OF REFILLS: 11
     Route: 048
  7. BINIMETINIB [Suspect]
     Active Substance: BINIMETINIB
     Indication: Metastatic malignant melanoma
     Dosage: 15 MILLIGRAM, BID (2 TABS EVERY 12 HR,120 TABS, 5 REFILL(S))
     Route: 048
  8. BINIMETINIB [Suspect]
     Active Substance: BINIMETINIB
     Dosage: 45 UNK, BID
     Route: 065
  9. BINIMETINIB [Suspect]
     Active Substance: BINIMETINIB
     Dosage: 30 UNK, BID
     Route: 065
  10. PEMBROLIZUMAB [Concomitant]
     Active Substance: PEMBROLIZUMAB
  11. DABRAFENIB [Concomitant]
     Active Substance: DABRAFENIB
  12. IPILIMUMAB [Concomitant]
     Active Substance: IPILIMUMAB
  13. NIVOLUMAB [Concomitant]
     Active Substance: NIVOLUMAB
  14. OPDUALAG [Concomitant]
     Active Substance: NIVOLUMAB\RELATLIMAB-RMBW

REACTIONS (3)
  - Malignant melanoma [Unknown]
  - Anaemia [Unknown]
  - Headache [Unknown]

NARRATIVE: CASE EVENT DATE: 20220101
